FAERS Safety Report 21578039 (Version 1)
Quarter: 2022Q4

REPORT INFORMATION
  Report Type: Spontaneous
  Country: US (occurrence: US)
  Receive Date: 20221110
  Receipt Date: 20221110
  Transmission Date: 20230113
  Serious: No
  Sender: FDA-Public Use
  Company Number: US-PFIZER INC-202201287071

PATIENT
  Age: 47 Year
  Sex: Male
  Weight: 79.83 kg

DRUGS (2)
  1. PAXLOVID [Suspect]
     Active Substance: NIRMATRELVIR\RITONAVIR
     Indication: COVID-19 treatment
     Dosage: UNK
     Dates: start: 20221101, end: 20221105
  2. LIALDA [Concomitant]
     Active Substance: MESALAMINE
     Indication: Crohn^s disease
     Dosage: 2.4 G, 1X/DAY
     Route: 048

REACTIONS (2)
  - Faeces pale [Not Recovered/Not Resolved]
  - Diarrhoea [Unknown]

NARRATIVE: CASE EVENT DATE: 20221105
